FAERS Safety Report 21732556 (Version 1)
Quarter: 2022Q4

REPORT INFORMATION
  Report Type: Spontaneous
  Country: US (occurrence: US)
  Receive Date: 20221215
  Receipt Date: 20221215
  Transmission Date: 20230113
  Serious: Yes (Life-Threatening, Hospitalization, Other)
  Sender: FDA-Public Use
  Company Number: US-SUN PHARMACEUTICAL INDUSTRIES LTD-2022R1-368351

PATIENT
  Age: 55 Year
  Sex: Male
  Weight: 108 kg

DRUGS (3)
  1. NOREPINEPHRINE [Suspect]
     Active Substance: NOREPINEPHRINE
     Indication: Ventricular tachycardia
     Dosage: UNK (0.5 UG/KG/MIN)
     Route: 065
  2. EPINEPHRINE [Suspect]
     Active Substance: EPINEPHRINE
     Indication: Ventricular tachycardia
     Dosage: UNK (0.05 UG/KG/MIN)
     Route: 065
  3. VASOPRESSIN [Suspect]
     Active Substance: VASOPRESSIN
     Indication: Ventricular tachycardia
     Dosage: UNK (0.04 UG/KG/MIN)
     Route: 065

REACTIONS (4)
  - Disease recurrence [Unknown]
  - Electrocardiogram ST segment elevation [Recovered/Resolved]
  - Electrocardiogram QT prolonged [Recovered/Resolved]
  - Cardiogenic shock [Recovered/Resolved]
